FAERS Safety Report 15841002 (Version 1)
Quarter: 2019Q1

REPORT INFORMATION
  Report Type: Report from Study
  Country: IT (occurrence: IT)
  Receive Date: 20190118
  Receipt Date: 20190118
  Transmission Date: 20190417
  Serious: Yes (Hospitalization)
  Sender: FDA-Public Use
  Company Number: IT-TEVA-2019-IT-100056

PATIENT
  Age: 80 Year
  Sex: Female
  Weight: 65 kg

DRUGS (1)
  1. PROPAFENONE HYDROCHLORIDE. [Suspect]
     Active Substance: PROPAFENONE HYDROCHLORIDE
     Indication: ARRHYTHMIA
     Dosage: 1500 MILLIGRAM DAILY;
     Route: 048
     Dates: start: 20181228, end: 20190102

REACTIONS (5)
  - Electrocardiogram QRS complex prolonged [Recovering/Resolving]
  - Medication error [Recovering/Resolving]
  - Tremor [Recovering/Resolving]
  - Vertigo [Recovering/Resolving]
  - Bradycardia [Recovering/Resolving]

NARRATIVE: CASE EVENT DATE: 20181228
